FAERS Safety Report 20726375 (Version 2)
Quarter: 2022Q2

REPORT INFORMATION
  Report Type: Spontaneous
  Country: JP (occurrence: JP)
  Receive Date: 20220419
  Receipt Date: 20220504
  Transmission Date: 20220721
  Serious: Yes (Hospitalization)
  Sender: FDA-Public Use
  Company Number: JP-TEVA-2022-JP-2028260

PATIENT
  Age: 54 Year
  Sex: Female

DRUGS (10)
  1. BERAPROST [Suspect]
     Active Substance: BERAPROST
     Indication: Pulmonary hypertension
     Route: 065
  2. SILDENAFIL [Suspect]
     Active Substance: SILDENAFIL
     Indication: Pulmonary hypertension
     Route: 065
  3. EPOPROSTENOL [Suspect]
     Active Substance: EPOPROSTENOL
     Indication: Pulmonary hypertension
     Route: 041
  4. EPOPROSTENOL [Suspect]
     Active Substance: EPOPROSTENOL
     Dosage: RECEIVED 90NG/KG/MIN
     Route: 041
  5. CYCLOPHOSPHAMIDE [Suspect]
     Active Substance: CYCLOPHOSPHAMIDE
     Indication: Pulmonary hypertension
     Dosage: PULSE THERAPY
     Route: 042
  6. MIZORIBINE [Suspect]
     Active Substance: MIZORIBINE
     Indication: Pulmonary hypertension
     Route: 065
  7. SELEXIPAG [Suspect]
     Active Substance: SELEXIPAG
     Indication: Pulmonary hypertension
     Route: 065
  8. MACITENTAN [Suspect]
     Active Substance: MACITENTAN
     Indication: Pulmonary hypertension
     Route: 065
  9. BOSENTAN [Suspect]
     Active Substance: BOSENTAN
     Route: 065
  10. AZATHIOPRINE [Concomitant]
     Active Substance: AZATHIOPRINE
     Indication: Product used for unknown indication
     Route: 065

REACTIONS (3)
  - Ascites [Recovering/Resolving]
  - Rebound effect [Recovered/Resolved]
  - Drug ineffective [Unknown]
